FAERS Safety Report 6709309-X (Version None)
Quarter: 2010Q2

REPORT INFORMATION
  Report Type: 
  Country: None (occurrence: None)
  Receive Date: 20100504
  Receipt Date: 20100423
  Transmission Date: 20101027
  Serious: Yes (Other)
  Sender: FDA-Public Use
  Company Number: US-JNJFOC-20100407478

PATIENT
  Sex: Male

DRUGS (4)
  1. REMICADE [Suspect]
     Indication: COLITIS ULCERATIVE
     Route: 042
  2. REMICADE [Suspect]
     Route: 042
  3. REMICADE [Suspect]
     Route: 042
  4. COUMADIN [Concomitant]
     Indication: DEEP VEIN THROMBOSIS

REACTIONS (2)
  - DEEP VEIN THROMBOSIS [None]
  - FREQUENT BOWEL MOVEMENTS [None]
